FAERS Safety Report 10185204 (Version 1)
Quarter: 2014Q2

REPORT INFORMATION
  Report Type: Spontaneous
  Country: US (occurrence: None)
  Receive Date: 20140520
  Receipt Date: 20140520
  Transmission Date: 20141212
  Serious: Yes (Disabling)
  Sender: FDA-Public Use
  Company Number: None

PATIENT
  Age: 26 Year
  Sex: Male
  Weight: 68.04 kg

DRUGS (1)
  1. PROPECIA [Suspect]
     Indication: ANDROGENETIC ALOPECIA
     Route: 048

REACTIONS (9)
  - Sexual dysfunction [None]
  - Penile size reduced [None]
  - Erectile dysfunction [None]
  - Libido decreased [None]
  - Ejaculation failure [None]
  - Genital hypoaesthesia [None]
  - Depression [None]
  - Anxiety [None]
  - Feeling abnormal [None]
